FAERS Safety Report 24228244 (Version 2)
Quarter: 2025Q2

REPORT INFORMATION
  Report Type: Spontaneous
  Country: CN (occurrence: CN)
  Receive Date: 20240820
  Receipt Date: 20250608
  Transmission Date: 20250716
  Serious: Yes (Life-Threatening)
  Sender: COHERUS
  Company Number: CN-SHANGHAI JUNSHI BIOSCIENCES CO., LTD.-CN2024011071

PATIENT

DRUGS (6)
  1. TORIPALIMAB [Suspect]
     Active Substance: TORIPALIMAB
     Indication: Tongue cancer recurrent
     Route: 041
     Dates: start: 20240725, end: 20240725
  2. DOCETAXEL [Concomitant]
     Active Substance: DOCETAXEL
     Indication: Tongue cancer recurrent
     Route: 041
     Dates: start: 20240725, end: 20240725
  3. CISPLATIN [Concomitant]
     Active Substance: CISPLATIN
     Indication: Tongue cancer recurrent
     Route: 041
     Dates: start: 20240725
  4. SODIUM CHLORIDE [Concomitant]
     Active Substance: SODIUM CHLORIDE
     Indication: Medication dilution
     Route: 041
     Dates: start: 20240725, end: 20240725
  5. SODIUM CHLORIDE [Concomitant]
     Active Substance: SODIUM CHLORIDE
     Indication: Medication dilution
     Route: 041
     Dates: start: 20240725, end: 20240725
  6. SODIUM CHLORIDE [Concomitant]
     Active Substance: SODIUM CHLORIDE
     Indication: Medication dilution
     Route: 041
     Dates: start: 20240725, end: 20240725

REACTIONS (5)
  - Renal impairment [Recovering/Resolving]
  - Asthenia [Recovering/Resolving]
  - Nausea [Recovering/Resolving]
  - Vomiting [Recovering/Resolving]
  - Off label use [Unknown]

NARRATIVE: CASE EVENT DATE: 20240725
